FAERS Safety Report 15119446 (Version 1)
Quarter: 2018Q3

REPORT INFORMATION
  Report Type: Spontaneous
  Country: US (occurrence: US)
  Receive Date: 20180709
  Receipt Date: 20180709
  Transmission Date: 20181010
  Serious: Yes (Life-Threatening)
  Sender: FDA-Public Use
  Company Number: US-OCTA-GAM34417US

PATIENT
  Age: 64 Year
  Sex: Female
  Weight: 90.7 kg

DRUGS (3)
  1. TYLENOL [Concomitant]
     Active Substance: ACETAMINOPHEN
     Indication: PREMEDICATION
     Route: 048
     Dates: start: 20171005, end: 20171005
  2. DIPHENHYDRAMINE. [Concomitant]
     Active Substance: DIPHENHYDRAMINE
     Indication: PREMEDICATION
     Route: 042
     Dates: start: 20171005, end: 20171005
  3. OCTAGAM IMMUNE GLOBULIN (HUMAN) [Suspect]
     Active Substance: HUMAN IMMUNOGLOBULIN G
     Indication: IMMUNE THROMBOCYTOPENIC PURPURA
     Route: 042
     Dates: start: 20171005, end: 20171005

REACTIONS (7)
  - Swollen tongue [Recovered/Resolved]
  - Pruritus [Recovered/Resolved]
  - Chills [Recovered/Resolved]
  - Throat tightness [Recovered/Resolved]
  - Heart rate increased [Recovered/Resolved]
  - Urticaria [Recovered/Resolved]
  - Hypertension [Recovered/Resolved]

NARRATIVE: CASE EVENT DATE: 20171005
